FAERS Safety Report 7372800-X (Version None)
Quarter: 2011Q1

REPORT INFORMATION
  Report Type: 
  Country: None (occurrence: None)
  Receive Date: 20110324
  Receipt Date: 20101203
  Transmission Date: 20110831
  Serious: No
  Sender: FDA-Public Use
  Company Number: US-BAUSCH-2010BL006445

PATIENT
  Age: 71 Year
  Sex: Male

DRUGS (26)
  1. UROXATRAL [Concomitant]
     Indication: PROSTATE CANCER
     Route: 048
  2. DICLOFENAC SODIUM [Suspect]
     Indication: PREOPERATIVE CARE
     Route: 047
     Dates: start: 20101108, end: 20101110
  3. NEXIUM [Concomitant]
     Indication: GASTROOESOPHAGEAL REFLUX DISEASE
     Route: 048
  4. LIPITOR [Concomitant]
     Indication: BLOOD CHOLESTEROL INCREASED
     Route: 048
  5. FLUOCINONIDE [Concomitant]
     Indication: RASH
     Route: 061
  6. FISH OIL [Concomitant]
     Indication: VITAMIN SUPPLEMENTATION
     Route: 048
  7. KLONOPIN [Concomitant]
     Indication: MUSCLE SPASMS
     Route: 048
  8. METOPROLOL [Concomitant]
     Indication: HYPERTENSION
     Route: 048
  9. SPIRIVA [Concomitant]
     Indication: CHRONIC OBSTRUCTIVE PULMONARY DISEASE
     Route: 049
  10. ASPIRIN [Concomitant]
     Indication: CORONARY ARTERY DISEASE
  11. BESIVANCE [Suspect]
     Indication: OFF LABEL USE
     Route: 047
     Dates: start: 20101108, end: 20101110
  12. ADVAIR DISKUS 100/50 [Concomitant]
     Indication: CHRONIC OBSTRUCTIVE PULMONARY DISEASE
  13. BESIVANCE [Suspect]
     Indication: ANTIBIOTIC PROPHYLAXIS
     Route: 047
     Dates: start: 20101108, end: 20101110
  14. NIASPAN [Concomitant]
     Indication: BLOOD CHOLESTEROL INCREASED
     Route: 048
  15. FOSAMAX [Concomitant]
     Indication: OSTEOPOROSIS
     Route: 048
  16. HYDROCHLOROTHIAZIDE [Concomitant]
     Indication: CORONARY ARTERY DISEASE
     Route: 048
  17. LOSARTAN POTASSIUM [Concomitant]
     Indication: HYPERTENSION
     Route: 048
  18. PROSCAR /USA/ [Concomitant]
     Indication: PROSTATE CANCER
     Route: 048
  19. CLOTRIMAZOLE [Concomitant]
     Indication: FUNGAL INFECTION
  20. NITROSTAT [Concomitant]
     Indication: CORONARY ARTERY DISEASE
  21. VITAMIN D [Concomitant]
     Indication: VITAMIN SUPPLEMENTATION
     Route: 048
  22. PLAVIX [Concomitant]
     Indication: CORONARY ARTERY DISEASE
     Route: 048
  23. POTASSIUM CHLORIDE [Concomitant]
     Route: 048
  24. EUCERIN CREME [Concomitant]
     Indication: DRY SKIN
     Route: 061
  25. CALCIUM [Concomitant]
     Indication: VITAMIN SUPPLEMENTATION
     Route: 048
  26. CENTRUM SILVER [Concomitant]
     Indication: VITAMIN SUPPLEMENTATION
     Route: 048

REACTIONS (1)
  - HYPERSENSITIVITY [None]
